FAERS Safety Report 7478491-1 (Version None)
Quarter: 2011Q2

REPORT INFORMATION
  Report Type: 
  Country: None (occurrence: None)
  Receive Date: 20110513
  Receipt Date: 20110502
  Transmission Date: 20111010
  Serious: Yes (Death)
  Sender: FDA-Public Use
  Company Number: US-ALEXION-A201001592

PATIENT
  Sex: Female
  Weight: 63 kg

DRUGS (10)
  1. PROTONIX [Concomitant]
     Indication: GASTROOESOPHAGEAL REFLUX DISEASE
     Dosage: 40 MG, QD
     Route: 048
     Dates: start: 20101101, end: 20101201
  2. SOLIRIS [Suspect]
     Indication: COLD TYPE HAEMOLYTIC ANAEMIA
     Dosage: 900 MG, SINGLE
     Route: 042
     Dates: start: 20101208, end: 20101208
  3. FOLIC ACID [Concomitant]
     Indication: ANAEMIA
     Dosage: 1 MG, QD
     Route: 048
     Dates: start: 20101001, end: 20101201
  4. CALCITRATE [Concomitant]
     Indication: HYPOCALCAEMIA
     Dosage: 200 MG, TID
     Route: 048
     Dates: start: 20101001, end: 20101201
  5. BENADRYL [Concomitant]
     Indication: PRURITUS
     Dosage: 2.5 MG, PRN
     Route: 048
     Dates: start: 20101001, end: 20101201
  6. MORPHINE [Concomitant]
     Dosage: UNK
     Dates: start: 20101001
  7. PLASMA [Concomitant]
     Dosage: UNK
  8. ZOFRAN [Concomitant]
     Indication: NAUSEA
     Dosage: 4 MG, PRN
     Route: 042
     Dates: start: 20101001, end: 20101201
  9. BLOOD TRANSFUSION, AUXILIARY PRODUCTS [Concomitant]
  10. CORTICOSTEROIDS [Concomitant]

REACTIONS (5)
  - RESPIRATORY FAILURE [None]
  - LACTIC ACIDOSIS [None]
  - CIRCULATORY COLLAPSE [None]
  - HYPOPERFUSION [None]
  - RENAL FAILURE [None]
